FAERS Safety Report 5449353-6 (Version None)
Quarter: 2007Q3

REPORT INFORMATION
  Report Type: 
  Country: None (occurrence: None)
  Receive Date: 20070911
  Receipt Date: 20070830
  Transmission Date: 20080115
  Serious: Yes (Other)
  Sender: FDA-Public Use
  Company Number: US-PFIZER INC-2007072559

PATIENT
  Sex: Female

DRUGS (1)
  1. LYRICA [Suspect]
     Dates: start: 20070813, end: 20070825

REACTIONS (5)
  - AGGRESSION [None]
  - DIZZINESS [None]
  - HALLUCINATION, VISUAL [None]
  - HEADACHE [None]
  - MIGRAINE WITH AURA [None]
